FAERS Safety Report 4716737-0 (Version None)
Quarter: 2005Q3

REPORT INFORMATION
  Report Type: 
  Country: None (occurrence: None)
  Receive Date: 20050714
  Receipt Date: 20050701
  Transmission Date: 20060218
  Serious: Yes (Other)
  Sender: FDA-Public Use
  Company Number: 2005098459

PATIENT
  Age: 44 Year
  Sex: Female

DRUGS (4)
  1. DEPO-MEDROL [Suspect]
     Indication: JOINT RANGE OF MOTION DECREASED
     Dates: start: 19980101
  2. KENALOG [Suspect]
     Indication: JOINT RANGE OF MOTION DECREASED
     Dates: start: 19980101
  3. DEXAMETHASONE SODIUM PHOSPHATE [Suspect]
     Indication: STEROID THERAPY
     Dosage: 6 MG (1 D)
     Dates: start: 20041102
  4. METHADONE HCL [Concomitant]

REACTIONS (16)
  - DRUG HYPERSENSITIVITY [None]
  - DRUG INEFFECTIVE [None]
  - FAECAL INCONTINENCE [None]
  - HYPOAESTHESIA [None]
  - INJECTION SITE DISCOLOURATION [None]
  - INTERVERTEBRAL DISC DEGENERATION [None]
  - INTRASPINAL ABSCESS [None]
  - JOINT LOCK [None]
  - MUSCLE SPASMS [None]
  - ORAL INTAKE REDUCED [None]
  - PAIN [None]
  - PIGMENTED NAEVUS [None]
  - POISONING [None]
  - PYREXIA [None]
  - SKIN DISCOLOURATION [None]
  - SPINAL DISORDER [None]
